FAERS Safety Report 7134559-0 (Version None)
Quarter: 2010Q4

REPORT INFORMATION
  Report Type: 
  Country: None (occurrence: None)
  Receive Date: 20101203
  Receipt Date: 20101122
  Transmission Date: 20110411
  Serious: Yes (Death)
  Sender: FDA-Public Use
  Company Number: ZA-SANOFI-AVENTIS-2010SA070751

PATIENT
  Age: 8 Month
  Sex: Female
  Weight: 4.3 kg

DRUGS (11)
  1. RIFAMPICIN [Suspect]
     Indication: TUBERCULOSIS
  2. RIFAMPICIN [Suspect]
  3. ISONIAZID [Suspect]
     Indication: TUBERCULOSIS
  4. ISONIAZID [Suspect]
  5. PYRAZINAMIDE [Suspect]
     Indication: TUBERCULOSIS
  6. ETHAMBUTOL HYDROCHLORIDE [Suspect]
     Indication: TUBERCULOSIS
  7. SULFAMETHOXAZOLE AND TRIMETHOPRIM [Suspect]
     Indication: PROPHYLAXIS
  8. ZIDOVUDINE [Suspect]
     Indication: RETROVIRAL INFECTION
  9. ZIDOVUDINE [Suspect]
  10. LAMIVUDINE [Suspect]
     Indication: RETROVIRAL INFECTION
  11. LOPINAVIR/RITONAVIR [Suspect]
     Indication: RETROVIRAL INFECTION

REACTIONS (2)
  - ACUTE HEPATIC FAILURE [None]
  - HEPATIC ENCEPHALOPATHY [None]
